FAERS Safety Report 25980214 (Version 1)
Quarter: 2025Q4

REPORT INFORMATION
  Report Type: Spontaneous
  Country: US (occurrence: None)
  Receive Date: 20251030
  Receipt Date: 20251030
  Transmission Date: 20260117
  Serious: Yes (Death)
  Sender: FDA-CTU
  Company Number: None

PATIENT
  Age: 60 Year
  Sex: Female

DRUGS (11)
  1. BIKTARVY [Suspect]
     Active Substance: BICTEGRAVIR SODIUM\EMTRICITABINE\TENOFOVIR ALAFENAMIDE FUMARATE
     Indication: HIV infection
     Dosage: OTHER QUANTITY : 50/200/25;?FREQUENCY : DAILY;?
     Route: 048
  2. CLONAZEPAM [Concomitant]
     Active Substance: CLONAZEPAM
  3. Gabapentin 800mg tablet [Concomitant]
  4. MUPIROCIN [Concomitant]
     Active Substance: MUPIROCIN
  5. ouetiapine 100mg tablet [Concomitant]
  6. Polyeth Glycol 3350 NF powder [Concomitant]
  7. Nicotine 21mg/24h patch [Concomitant]
  8. cionidine 0.1mg tablet [Concomitant]
  9. IBUPROFEN [Concomitant]
     Active Substance: IBUPROFEN
  10. senzoyl Peroxide 10% wash [Concomitant]
  11. Levothyroxine 0.125mg tablet [Concomitant]

REACTIONS (1)
  - Overdose [None]

NARRATIVE: CASE EVENT DATE: 20251015
